FAERS Safety Report 20953835 (Version 1)
Quarter: 2022Q2

REPORT INFORMATION
  Report Type: Report from Study
  Country: US (occurrence: US)
  Receive Date: 20220614
  Receipt Date: 20220614
  Transmission Date: 20220720
  Serious: Yes (Other)
  Sender: FDA-Public Use
  Company Number: US-GILEAD-2022-0585424

PATIENT
  Age: 38 Year
  Sex: Female

DRUGS (1)
  1. BICTEGRAVIR\EMTRICITABINE\TENOFOVIR ALAFENAMIDE [Suspect]
     Active Substance: BICTEGRAVIR\EMTRICITABINE\TENOFOVIR ALAFENAMIDE
     Indication: HIV infection
     Route: 065

REACTIONS (9)
  - Diabetes mellitus [Unknown]
  - Inflammatory bowel disease [Unknown]
  - Hypersensitivity [Unknown]
  - Chronic fatigue syndrome [Unknown]
  - Chronic sinusitis [Unknown]
  - Constipation [Unknown]
  - Pain in extremity [Unknown]
  - Obesity [Unknown]
  - Sinus disorder [Unknown]
